FAERS Safety Report 11130408 (Version 1)
Quarter: 2015Q2

REPORT INFORMATION
  Report Type: Spontaneous
  Country: JP (occurrence: JP)
  Receive Date: 20150522
  Receipt Date: 20150522
  Transmission Date: 20150821
  Serious: Yes (Other)
  Sender: FDA-Public Use
  Company Number: JP-PFIZER INC-2015081513

PATIENT
  Age: 62 Year
  Sex: Female
  Weight: 40 kg

DRUGS (4)
  1. LYRICA [Suspect]
     Active Substance: PREGABALIN
     Indication: HYPOAESTHESIA
     Dosage: 75 MG, 1X/DAY
     Route: 048
     Dates: start: 20110930, end: 20141218
  2. URSO [Concomitant]
     Active Substance: URSODIOL
  3. LYRICA [Suspect]
     Active Substance: PREGABALIN
     Indication: PAIN
     Dosage: 75 MG, 3X/DAY
     Route: 048
     Dates: start: 20101125, end: 20110929
  4. LYRICA [Suspect]
     Active Substance: PREGABALIN
     Dosage: 125 MG, DAILY (50 MG IN THE MORNING, 75 MG IN THE EVENING)
     Route: 048
     Dates: start: 20141219

REACTIONS (6)
  - Abnormal sensation in eye [Not Recovered/Not Resolved]
  - Visual field defect [Recovered/Resolved]
  - Drug ineffective [Recovered/Resolved]
  - Vision blurred [Not Recovered/Not Resolved]
  - Hepatic cirrhosis [Unknown]
  - Visual acuity reduced [Not Recovered/Not Resolved]

NARRATIVE: CASE EVENT DATE: 20110726
